FAERS Safety Report 8053549-7 (Version None)
Quarter: 2012Q1

REPORT INFORMATION
  Report Type: 
  Country: None (occurrence: None)
  Receive Date: 20120118
  Receipt Date: 20120111
  Transmission Date: 20120608
  Serious: Yes (Hospitalization, Disabling, Other)
  Sender: FDA-Public Use
  Company Number: US-MERCK-1106USA04019

PATIENT
  Age: 55 Year
  Sex: Female
  Weight: 62 kg

DRUGS (9)
  1. ATENOLOL [Concomitant]
     Route: 065
     Dates: start: 20001001, end: 20020101
  2. ZESTORETIC [Concomitant]
     Route: 048
     Dates: start: 20040701
  3. CALCIUM (UNSPECIFIED) AND VITAMIN D (UNSPECIFIED) [Concomitant]
     Route: 065
  4. CLARITIN [Concomitant]
     Route: 048
     Dates: start: 20090101
  5. NIACIN [Concomitant]
     Route: 065
     Dates: start: 20070101
  6. FOSAMAX [Suspect]
     Indication: OSTEOPENIA
     Route: 048
     Dates: start: 20020701, end: 20080501
  7. FOSAMAX [Suspect]
     Route: 048
     Dates: start: 20080501, end: 20101201
  8. VITAMINS (UNSPECIFIED) [Concomitant]
     Route: 065
  9. IMITREX [Concomitant]
     Route: 065
     Dates: start: 19950101

REACTIONS (17)
  - GASTRITIS [None]
  - CHONDROPATHY [None]
  - CYST [None]
  - COUGH [None]
  - FRACTURE NONUNION [None]
  - LACERATION [None]
  - HYPERCHOLESTEROLAEMIA [None]
  - ARTHROPATHY [None]
  - ARTHRITIS [None]
  - HYPERSENSITIVITY [None]
  - FINGER AMPUTATION [None]
  - FALL [None]
  - GASTROOESOPHAGEAL REFLUX DISEASE [None]
  - OROPHARYNGEAL PAIN [None]
  - PAIN IN EXTREMITY [None]
  - BRONCHITIS [None]
  - FEMUR FRACTURE [None]
